FAERS Safety Report 9439345 (Version 2)
Quarter: 2014Q3

REPORT INFORMATION
  Report Type: Spontaneous
  Country: DE (occurrence: DE)
  Receive Date: 20130805
  Receipt Date: 20140912
  Transmission Date: 20150326
  Serious: Yes (Other)
  Sender: FDA-Public Use
  Company Number: DE-ELI_LILLY_AND_COMPANY-DE201307007771

PATIENT
  Sex: Male

DRUGS (26)
  1. NEUREX                             /00434802/ [Concomitant]
     Dosage: UNK, UNKNOWN
     Route: 065
  2. PANTOPRAZOLE [Concomitant]
     Active Substance: PANTOPRAZOLE SODIUM
     Dosage: 1 DF, UNKNOWN
     Route: 065
  3. LYRICA [Concomitant]
     Active Substance: PREGABALIN
     Dosage: 1 DF, UNKNOWN
     Route: 065
  4. LEXOTANIL [Concomitant]
     Active Substance: BROMAZEPAM
     Dosage: UNK, UNKNOWN
     Route: 065
  5. ZYPREXA [Suspect]
     Active Substance: OLANZAPINE
     Indication: DEPRESSION
  6. TAVOR [Suspect]
     Active Substance: LORAZEPAM
     Indication: PRODUCT USED FOR UNKNOWN INDICATION
     Dosage: 20 MG, UNKNOWN
     Route: 065
  7. ZYPREXA [Suspect]
     Active Substance: OLANZAPINE
     Indication: SOCIAL PHOBIA
     Dosage: 5 MG, UNKNOWN
     Route: 065
     Dates: start: 2009
  8. ZYPREXA [Suspect]
     Active Substance: OLANZAPINE
     Indication: POST-TRAUMATIC STRESS DISORDER
     Dosage: 60 MG, UNKNOWN
     Route: 065
     Dates: end: 201406
  9. CYMBALTA [Suspect]
     Active Substance: DULOXETINE HYDROCHLORIDE
     Indication: PRODUCT USED FOR UNKNOWN INDICATION
     Dosage: 120 MG, UNKNOWN
     Route: 065
  10. IBUPROFEN. [Concomitant]
     Active Substance: IBUPROFEN
     Dosage: 1 DF, PRN
     Route: 065
  11. ZOLOFT [Concomitant]
     Active Substance: SERTRALINE HYDROCHLORIDE
     Dosage: UNK, UNKNOWN
     Route: 065
  12. FLUCTIN                            /00724402/ [Concomitant]
     Route: 065
  13. DOXEPIN [Concomitant]
     Active Substance: DOXEPIN
     Dosage: UNK, UNKNOWN
     Route: 065
  14. ZYPREXA [Suspect]
     Active Substance: OLANZAPINE
     Indication: GENERALISED ANXIETY DISORDER
     Dosage: 15 MG, UNKNOWN
     Route: 048
     Dates: start: 2010
  15. ZYPREXA [Suspect]
     Active Substance: OLANZAPINE
     Indication: PANIC DISORDER WITH AGORAPHOBIA
     Dosage: 20 MG, UNKNOWN
     Route: 048
  16. ROHYPNOL [Concomitant]
     Active Substance: FLUNITRAZEPAM
     Dosage: UNK, UNKNOWN
     Route: 065
  17. DORMICUM                           /00634101/ [Concomitant]
     Dosage: UNK, UNKNOWN
     Route: 065
  18. ZYPREXA [Suspect]
     Active Substance: OLANZAPINE
     Indication: INSOMNIA
     Dosage: 10 MG, UNKNOWN
     Route: 065
  19. DIAZEPAM RATIOPHARM [Concomitant]
     Active Substance: DIAZEPAM
     Dosage: 1 DF, UNKNOWN
     Route: 065
  20. PLANUM                             /00393701/ [Concomitant]
     Dosage: UNK, UNKNOWN
     Route: 065
  21. SEROQUEL [Concomitant]
     Active Substance: QUETIAPINE FUMARATE
     Dosage: UNK, UNKNOWN
     Route: 065
  22. ATOSIL                             /00133602/ [Concomitant]
     Active Substance: ISOPROMETHAZINE
     Dosage: UNK, UNKNOWN
     Route: 065
  23. TREVILOR RETARD [Suspect]
     Active Substance: VENLAFAXINE HYDROCHLORIDE
     Indication: PRODUCT USED FOR UNKNOWN INDICATION
     Dosage: 1 DF, UNKNOWN
     Route: 065
  24. DUAC [Concomitant]
     Active Substance: BENZOYL PEROXIDE\CLINDAMYCIN PHOSPHATE
     Dosage: 1 DF, UNKNOWN
     Route: 065
  25. BISOPROLOL [Concomitant]
     Active Substance: BISOPROLOL
     Dosage: 1 DF, UNKNOWN
     Route: 065
  26. TAFIL [Concomitant]
     Active Substance: ALPRAZOLAM
     Dosage: 1 DF, UNKNOWN
     Route: 065

REACTIONS (19)
  - Blood cholesterol increased [Not Recovered/Not Resolved]
  - Blood prolactin increased [Recovered/Resolved]
  - Alanine aminotransferase increased [Not Recovered/Not Resolved]
  - Hyperphagia [Recovered/Resolved]
  - Alopecia [Recovered/Resolved]
  - Aspartate aminotransferase increased [Not Recovered/Not Resolved]
  - Increased appetite [Recovered/Resolved]
  - Restlessness [Recovered/Resolved]
  - Prescribed overdose [Unknown]
  - Abnormal behaviour [Not Recovered/Not Resolved]
  - Off label use [Unknown]
  - Fluid retention [Not Recovered/Not Resolved]
  - Mental disorder [Not Recovered/Not Resolved]
  - Fatigue [Recovered/Resolved]
  - Somnolence [Recovered/Resolved]
  - Breast enlargement [Recovered/Resolved]
  - Depression [Recovered/Resolved]
  - Weight increased [Recovered/Resolved]
  - Generalised oedema [Recovered/Resolved]

NARRATIVE: CASE EVENT DATE: 2009
